FAERS Safety Report 23274489 (Version 1)
Quarter: 2023Q4

REPORT INFORMATION
  Report Type: Spontaneous
  Country: US (occurrence: US)
  Receive Date: 20231208
  Receipt Date: 20231208
  Transmission Date: 20240110
  Serious: No
  Sender: FDA-Public Use
  Company Number: US-ABBVIE-5526852

PATIENT

DRUGS (4)
  1. BOTOX COSMETIC [Suspect]
     Active Substance: ONABOTULINUMTOXINA
     Indication: Skin wrinkling
     Dosage: TIME INTERVAL: AS NECESSARY: TOTAL DOSE- 34 UNITS
     Route: 065
     Dates: start: 20230905, end: 20230905
  2. BOTOX COSMETIC [Suspect]
     Active Substance: ONABOTULINUMTOXINA
     Indication: Skin wrinkling
     Dosage: TIME INTERVAL: AS NECESSARY: TOTAL DOSE-34 UNITS
     Route: 065
     Dates: start: 20230905, end: 20230905
  3. BOTOX COSMETIC [Suspect]
     Active Substance: ONABOTULINUMTOXINA
     Indication: Skin wrinkling
     Dosage: TIME INTERVAL: AS NECESSARY: TOTAL DOSE- 34 UNITS
     Route: 065
     Dates: start: 20230905, end: 20230905
  4. BOTOX COSMETIC [Suspect]
     Active Substance: ONABOTULINUMTOXINA
     Indication: Skin wrinkling
     Dosage: TIME INTERVAL: AS NECESSARY: TOTAL DOSE- 34 UNITS
     Route: 065
     Dates: start: 20230905, end: 20230905

REACTIONS (7)
  - Discomfort [Unknown]
  - Paranasal sinus discomfort [Unknown]
  - Paraesthesia [Unknown]
  - Tinnitus [Unknown]
  - Neurological symptom [Not Recovered/Not Resolved]
  - Visual impairment [Unknown]
  - Off label use [Unknown]

NARRATIVE: CASE EVENT DATE: 20230101
